FAERS Safety Report 8916209 (Version 1)
Quarter: 2012Q4

REPORT INFORMATION
  Report Type: 
  Country: FR (occurrence: FR)
  Receive Date: 20121120
  Receipt Date: 20121120
  Transmission Date: 20130627
  Serious: Yes (Hospitalization)
  Sender: FDA-Public Use
  Company Number: FR-GLAXOSMITHKLINE-B0843318A

PATIENT
  Age: 58 Year
  Sex: Female

DRUGS (2)
  1. LAMICTAL [Suspect]
     Indication: BIPOLAR DISORDER
     Dosage: 25MG Per day
     Route: 048
     Dates: start: 20120914, end: 20120923
  2. ASPEGIC [Concomitant]
     Indication: HEADACHE
     Dosage: 1G Three times per day
     Route: 065

REACTIONS (12)
  - Rash maculo-papular [Recovering/Resolving]
  - Nasopharyngitis [Unknown]
  - Cough [Unknown]
  - Musculoskeletal stiffness [Unknown]
  - Inflammation [Unknown]
  - Hyperaemia [Unknown]
  - Conjunctival disorder [Unknown]
  - Pharyngeal erythema [Unknown]
  - Perianal erythema [Unknown]
  - Lymphadenopathy [Unknown]
  - Alanine aminotransferase increased [Unknown]
  - Aspartate aminotransferase increased [Unknown]
